FAERS Safety Report 17671693 (Version 1)
Quarter: 2020Q2

REPORT INFORMATION
  Report Type: Other
  Country: US (occurrence: US)
  Receive Date: 20200415
  Receipt Date: 20200415
  Transmission Date: 20200713
  Serious: Yes (Hospitalization)
  Sender: FDA-Public Use
  Company Number: US-ALKERMES INC.-ALK-2019-002656

PATIENT
  Age: 42 Year
  Sex: Male
  Weight: 68.93 kg

DRUGS (1)
  1. VIVITROL [Suspect]
     Active Substance: NALTREXONE
     Indication: DRUG DEPENDENCE
     Dosage: 380 MG, QMO
     Route: 030
     Dates: start: 20181001, end: 20181001

REACTIONS (7)
  - Lactobacillus test positive [Unknown]
  - Injection site abscess [Unknown]
  - Muscle abscess [Unknown]
  - Injection site swelling [Unknown]
  - Drug dependence [Unknown]
  - Injection site reaction [Unknown]
  - Endocarditis [Unknown]

NARRATIVE: CASE EVENT DATE: 20190111
